FAERS Safety Report 19081021 (Version 1)
Quarter: 2021Q2

REPORT INFORMATION
  Report Type: Report from Study
  Country: US (occurrence: US)
  Receive Date: 20210401
  Receipt Date: 20210401
  Transmission Date: 20210717
  Serious: Yes (Death, Other)
  Sender: FDA-Public Use
  Company Number: US-ASTRAZENECA-2021A224997

PATIENT
  Age: 29613 Day
  Sex: Female
  Weight: 89.4 kg

DRUGS (3)
  1. LYNPARZA [Suspect]
     Active Substance: OLAPARIB
     Route: 048
  2. METFORMIN [Concomitant]
     Active Substance: METFORMIN HYDROCHLORIDE
     Route: 065
  3. IRBESARTAN. [Concomitant]
     Active Substance: IRBESARTAN
     Route: 065

REACTIONS (2)
  - Pancreatic carcinoma [Unknown]
  - Death [Fatal]

NARRATIVE: CASE EVENT DATE: 20200203
